FAERS Safety Report 7557974-X (Version None)
Quarter: 2011Q2

REPORT INFORMATION
  Report Type: 
  Country: None (occurrence: None)
  Receive Date: 20110613
  Receipt Date: 20110606
  Transmission Date: 20111010
  Serious: Yes (Life-Threatening, Hospitalization)
  Sender: FDA-Public Use
  Company Number: 2011SP015231

PATIENT
  Age: 48 Year
  Sex: Male
  Weight: 92 kg

DRUGS (8)
  1. VIRAFERONPEG [Suspect]
     Indication: HEPATITIS C
     Dosage: 135 MCG, SC
     Route: 058
     Dates: start: 20110222
  2. GRANOCYTE 34 [Concomitant]
  3. BUPRENORPHINE [Concomitant]
  4. BOCEPREVIR (SCH-503034) [Suspect]
     Indication: HEPATITIS C
     Dosage: 800 MIG, TID,
     Dates: start: 20110321
  5. PROPRANOLOL [Concomitant]
  6. NEORECORMON [Concomitant]
  7. REBETOL [Suspect]
     Indication: HEPATITIS C
     Dosage: 1200 MG, QD, PO
     Route: 048
     Dates: start: 20110222
  8. LASIX [Concomitant]

REACTIONS (2)
  - ESCHERICHIA INFECTION [None]
  - PERITONEAL INFECTION [None]
